FAERS Safety Report 5705274-2 (Version None)
Quarter: 2008Q2

REPORT INFORMATION
  Report Type: 
  Country: None (occurrence: None)
  Receive Date: 20080410
  Receipt Date: 20080327
  Transmission Date: 20081010
  Serious: Yes (Hospitalization)
  Sender: FDA-Public Use
  Company Number: 230001M08HUN

PATIENT
  Age: 40 Year
  Sex: Female
  Weight: 60 kg

DRUGS (2)
  1. REBIF [Suspect]
     Indication: RELAPSING-REMITTING MULTIPLE SCLEROSIS
     Dosage: 44 MCG, 3 IN 1 WEEKS, SUBCUTANEOUS
     Route: 058
     Dates: start: 20071212, end: 20080314
  2. CITALOPRAM /00582601/ [Concomitant]

REACTIONS (5)
  - ERYSIPELAS [None]
  - INJECTION SITE REACTION [None]
  - NECROSIS [None]
  - PYREXIA [None]
  - SKIN ULCER [None]
